FAERS Safety Report 5737504-5 (Version None)
Quarter: 2008Q2

REPORT INFORMATION
  Report Type: 
  Country: None (occurrence: None)
  Receive Date: 20080512
  Receipt Date: 20080512
  Transmission Date: 20081010
  Serious: Yes (Hospitalization)
  Sender: FDA-Public Use
  Company Number: None

PATIENT
  Age: 36 Year
  Sex: Female
  Weight: 72.2 kg

DRUGS (1)
  1. IOVERSOL [Suspect]
     Indication: COMPUTERISED TOMOGRAM
     Dosage: 75 ML ONCE IV
     Route: 042
     Dates: start: 20080407, end: 20080407

REACTIONS (4)
  - CHILLS [None]
  - DYSPNOEA [None]
  - HYPERHIDROSIS [None]
  - PALPITATIONS [None]
